FAERS Safety Report 4362928-0 (Version None)
Quarter: 2004Q2

REPORT INFORMATION
  Report Type: 
  Country: None (occurrence: None)
  Receive Date: 20040518
  Receipt Date: 20040115
  Transmission Date: 20050107
  Serious: Yes (Death)
  Sender: FDA-Public Use
  Company Number: 2004AP01240

PATIENT
  Age: 83 Year
  Sex: Male

DRUGS (2)
  1. IRESSA [Suspect]
     Indication: NON-SMALL CELL LUNG CANCER
     Dosage: 250 MG DAILY PO
     Route: 048
     Dates: start: 20031231, end: 20040101
  2. RENIVACE [Concomitant]

REACTIONS (15)
  - BRONCHOPNEUMONIA [None]
  - CARDIAC FAILURE CONGESTIVE [None]
  - CONDITION AGGRAVATED [None]
  - CRYPTOGENIC ORGANIZING PNEUMONIA [None]
  - DISSEMINATED INTRAVASCULAR COAGULATION [None]
  - HEPATIC FIBROSIS [None]
  - INTERSTITIAL LUNG DISEASE [None]
  - LIVER DISORDER [None]
  - LUNG CONSOLIDATION [None]
  - PNEUMONIA ASPIRATION [None]
  - PULMONARY HAEMORRHAGE [None]
  - PULMONARY OEDEMA [None]
  - RENAL IMPAIRMENT [None]
  - RESPIRATORY FAILURE [None]
  - SPLENOMEGALY [None]
